FAERS Safety Report 7674010-5 (Version None)
Quarter: 2011Q3

REPORT INFORMATION
  Report Type: 
  Country: None (occurrence: None)
  Receive Date: 20110810
  Receipt Date: 20110510
  Transmission Date: 20111222
  Serious: No
  Sender: FDA-Public Use
  Company Number: US-GLAXOSMITHKLINE-A0929124A

PATIENT
  Sex: Female

DRUGS (3)
  1. CALCIUM CARBONATE [Concomitant]
  2. PAXIL CR [Suspect]
     Indication: DEPRESSION
     Dosage: 12.5MG TWICE PER DAY
     Route: 048
  3. VITAMIN TAB [Concomitant]

REACTIONS (1)
  - ABNORMAL BEHAVIOUR [None]
